FAERS Safety Report 9398420 (Version 1)
Quarter: 2013Q3

REPORT INFORMATION
  Report Type: Spontaneous
  Country: US (occurrence: US)
  Receive Date: 20130712
  Receipt Date: 20130712
  Transmission Date: 20140515
  Serious: No
  Sender: FDA-Public Use
  Company Number: US-GLAXOSMITHKLINE-A1019068A

PATIENT
  Age: 3 Year
  Sex: Male

DRUGS (1)
  1. FLOVENT [Suspect]
     Dosage: 2PUFF SINGLE DOSE
     Route: 055
     Dates: start: 20130404

REACTIONS (2)
  - Agitation [Unknown]
  - Insomnia [Unknown]
